FAERS Safety Report 19953879 (Version 1)
Quarter: 2021Q4

REPORT INFORMATION
  Report Type: Spontaneous
  Country: US (occurrence: CA)
  Receive Date: 20211013
  Receipt Date: 20211013
  Transmission Date: 20220303
  Serious: Yes (Other)
  Sender: FDA-Public Use
  Company Number: US-DSJP-DSU-2021-133534

PATIENT
  Age: 71 Year
  Sex: Male
  Weight: 101 kg

DRUGS (3)
  1. EFFIENT [Suspect]
     Active Substance: PRASUGREL HYDROCHLORIDE
     Indication: Angioplasty
     Dosage: 1 DF
     Route: 048
     Dates: start: 201112
  2. EFFIENT [Suspect]
     Active Substance: PRASUGREL HYDROCHLORIDE
     Dosage: 1 DF
     Route: 048
     Dates: start: 202011
  3. EFFIENT [Suspect]
     Active Substance: PRASUGREL HYDROCHLORIDE
     Dosage: 1 DF
     Route: 048
     Dates: start: 202101

REACTIONS (2)
  - Angioplasty [Unknown]
  - Off label use [Unknown]

NARRATIVE: CASE EVENT DATE: 20201101
